FAERS Safety Report 5145563-6 (Version None)
Quarter: 2006Q4

REPORT INFORMATION
  Report Type: 
  Country: None (occurrence: None)
  Receive Date: 20061101
  Receipt Date: 20061023
  Transmission Date: 20070319
  Serious: Yes (Hospitalization)
  Sender: FDA-Public Use
  Company Number: 163-21880-06101067

PATIENT
  Age: 76 Year
  Sex: Male

DRUGS (2)
  1. REVLIMID [Suspect]
     Indication: MULTIPLE MYELOMA
     Dosage: 25 MG, DAILY X21 DAYS ON, 7 DAYS OFF, ORAL
     Route: 048
     Dates: start: 20060921, end: 20061009
  2. REVLIMID [Suspect]
     Indication: MULTIPLE MYELOMA
     Dosage: 25 MG, DAILY X21 DAYS ON, 7 DAYS OFF, ORAL
     Route: 048
     Dates: start: 20061024

REACTIONS (5)
  - CATHETER RELATED COMPLICATION [None]
  - CYSTITIS [None]
  - ENTERITIS INFECTIOUS [None]
  - THROMBOCYTOPENIA [None]
  - THROMBOSIS [None]
